FAERS Safety Report 10501393 (Version 1)
Quarter: 2014Q4

REPORT INFORMATION
  Report Type: Spontaneous
  Country: US (occurrence: None)
  Receive Date: 20141006
  Receipt Date: 20141006
  Transmission Date: 20150528
  Serious: Yes (Life-Threatening)
  Sender: FDA-Public Use
  Company Number: None

PATIENT
  Age: 87 Year
  Sex: Male
  Weight: 126.4 kg

DRUGS (2)
  1. LORAZEPAM. [Suspect]
     Active Substance: LORAZEPAM
     Indication: AGITATION
     Dosage: 1 MG ONCE PO
     Route: 048
     Dates: start: 20140913, end: 20140913
  2. LORAZEPAM. [Suspect]
     Active Substance: LORAZEPAM
     Indication: INSOMNIA
     Dosage: 1 MG ONCE PO
     Route: 048
     Dates: start: 20140913, end: 20140913

REACTIONS (4)
  - Local swelling [None]
  - Dyspnoea [None]
  - Swelling face [None]
  - Anaphylactic reaction [None]

NARRATIVE: CASE EVENT DATE: 20140913
